FAERS Safety Report 15954701 (Version 2)
Quarter: 2019Q1

REPORT INFORMATION
  Report Type: Report from Study
  Country: None (occurrence: US)
  Receive Date: 20190213
  Receipt Date: 20190325
  Transmission Date: 20190417
  Serious: Yes (Hospitalization)
  Sender: FDA-Public Use
  Company Number: US-ABBVIE-19K-163-2660325-00

PATIENT
  Age: 28 Year
  Sex: Female
  Weight: 54.93 kg

DRUGS (6)
  1. ZOFRAN [Concomitant]
     Active Substance: ONDANSETRON HYDROCHLORIDE
     Indication: NAUSEA
  2. 6-METHYLMERCAPTOPURINE [Concomitant]
     Active Substance: MERCAPTOPURINE
     Indication: CROHN^S DISEASE
  3. HUMIRA [Suspect]
     Active Substance: ADALIMUMAB
     Indication: CROHN^S DISEASE
     Route: 058
  4. COLESTIPOL [Concomitant]
     Active Substance: COLESTIPOL
     Indication: CROHN^S DISEASE
  5. FENTANYL. [Concomitant]
     Active Substance: FENTANYL
     Indication: PAIN
  6. OXYCODON [Concomitant]
     Active Substance: OXYCODONE
     Indication: PAIN

REACTIONS (10)
  - Abdominal pain [Unknown]
  - Tongue pruritus [Not Recovered/Not Resolved]
  - Eye swelling [Unknown]
  - Lip swelling [Not Recovered/Not Resolved]
  - Mouth swelling [Unknown]
  - Stomatitis [Unknown]
  - Peripheral swelling [Unknown]
  - Throat irritation [Not Recovered/Not Resolved]
  - Urticaria [Not Recovered/Not Resolved]
  - Chest pain [Unknown]

NARRATIVE: CASE EVENT DATE: 2019
